FAERS Safety Report 5847623-0 (Version None)
Quarter: 2008Q3

REPORT INFORMATION
  Report Type: 
  Country: None (occurrence: None)
  Receive Date: 20080815
  Receipt Date: 20080815
  Transmission Date: 20090109
  Serious: No
  Sender: FDA-Public Use
  Company Number: None

PATIENT

DRUGS (1)
  1. DIGITEK [Suspect]

REACTIONS (8)
  - CHEST PAIN [None]
  - ERUCTATION [None]
  - FEAR [None]
  - FEELING ABNORMAL [None]
  - HEART RATE ABNORMAL [None]
  - INCORRECT DOSE ADMINISTERED [None]
  - MALAISE [None]
  - PHARMACEUTICAL PRODUCT COMPLAINT [None]
